FAERS Safety Report 6086977-X (Version None)
Quarter: 2009Q1

REPORT INFORMATION
  Report Type: 
  Country: None (occurrence: None)
  Receive Date: 20090219
  Receipt Date: 20090211
  Transmission Date: 20090719
  Serious: Yes (Death, Hospitalization)
  Sender: FDA-Public Use
  Company Number: 2009US000129

PATIENT
  Age: 58 Year
  Sex: Male

DRUGS (3)
  1. MYCAMINE [Suspect]
     Indication: DRUG USE FOR UNKNOWN INDICATION
     Dosage: 150 MG, UID/QD; 150 MG, UID/QD, IV NOS
     Route: 042
     Dates: start: 20070320, end: 20070430
  2. MYCAMINE [Suspect]
     Indication: DRUG USE FOR UNKNOWN INDICATION
     Dosage: 150 MG, UID/QD; 150 MG, UID/QD, IV NOS
     Route: 042
     Dates: start: 20070901, end: 20081010
  3. PROGRAF [Suspect]
     Indication: LUNG TRANSPLANT
     Dates: start: 20071001, end: 20090101

REACTIONS (20)
  - BRONCHOPULMONARY ASPERGILLOSIS [None]
  - CHEST PAIN [None]
  - CHOLECYSTITIS [None]
  - CHOLECYSTITIS ACUTE [None]
  - DEEP VEIN THROMBOSIS [None]
  - ENTEROCOCCAL BACTERAEMIA [None]
  - FALL [None]
  - FEMORAL NECK FRACTURE [None]
  - HAEMODIALYSIS [None]
  - LUNG INFECTION PSEUDOMONAL [None]
  - MENTAL STATUS CHANGES [None]
  - NOSOCOMIAL INFECTION [None]
  - PNEUMONIA [None]
  - RENAL INJURY [None]
  - RESPIRATORY FAILURE [None]
  - SPUTUM CULTURE POSITIVE [None]
  - STENOTROPHOMONAS INFECTION [None]
  - TACHYCARDIA [None]
  - TACHYPNOEA [None]
  - THERAPEUTIC RESPONSE DECREASED [None]
